FAERS Safety Report 8343608 (Version 5)
Quarter: 2012Q4

REPORT INFORMATION
  Report Type: 
  Country: JP (occurrence: JP)
  Receive Date: 20120119
  Receipt Date: 20120925
  Transmission Date: 20130627
  Serious: Yes (Death, Hospitalization)
  Sender: FDA-Public Use
  Company Number: JP-ABBOTT-11P-087-0710059-00

PATIENT
  Age: 72 Year
  Sex: Male
  Weight: 63 kg

DRUGS (7)
  1. HUMIRA 40 MG/ 0.8 ML PRE-FILLED SYRINGE [Suspect]
     Indication: RHEUMATOID ARTHRITIS
     Route: 058
     Dates: start: 20101202, end: 20110126
  2. METHOTREXATE MERCK [Suspect]
     Indication: PRODUCT USED FOR UNKNOWN INDICATION
     Dates: start: 20080310, end: 20100207
  3. METHOTREXATE MERCK [Suspect]
     Dates: start: 20100208, end: 20110201
  4. METHOTREXATE [Concomitant]
     Indication: RHEUMATOID ARTHRITIS
     Route: 048
  5. STEROID [Concomitant]
     Indication: RHEUMATOID ARTHRITIS
  6. AMLODIPINE BESILATE [Concomitant]
     Indication: HYPERTENSION
     Route: 048
     Dates: start: 20101111, end: 20110208
  7. PREDNISOLONE [Concomitant]
     Indication: RHEUMATOID ARTHRITIS
     Route: 048
     Dates: start: 20100811, end: 20101120

REACTIONS (4)
  - Interstitial lung disease [Fatal]
  - Decreased appetite [Unknown]
  - Arthralgia [Unknown]
  - Respiratory distress [Unknown]
